FAERS Safety Report 6594683-8 (Version None)
Quarter: 2010Q1

REPORT INFORMATION
  Report Type: 
  Country: None (occurrence: None)
  Receive Date: 20100222
  Receipt Date: 20100120
  Transmission Date: 20100710
  Serious: No
  Sender: FDA-Public Use
  Company Number: US-BAYER-201012463NA

PATIENT
  Age: 32 Year
  Sex: Female
  Weight: 48 kg

DRUGS (3)
  1. ULTRAVIST (PHARMACY BULK) [Suspect]
     Indication: COMPUTERISED TOMOGRAM ABDOMEN
     Dosage: TOTAL DAILY DOSE: 80 ML  UNIT DOSE: 500 ML
     Route: 042
     Dates: start: 20100120, end: 20100120
  2. ULTRAVIST (PHARMACY BULK) [Suspect]
     Route: 048
  3. YASMIN [Concomitant]

REACTIONS (2)
  - PRURITUS [None]
  - URTICARIA [None]
